FAERS Safety Report 8934438 (Version 1)
Quarter: 2012Q4

REPORT INFORMATION
  Report Type: 
  Country: NL (occurrence: NL)
  Receive Date: 20121128
  Receipt Date: 20121128
  Transmission Date: 20130627
  Serious: Yes (Other)
  Sender: FDA-Public Use
  Company Number: NL-009507513-1211NLD010812

PATIENT
  Sex: Female

DRUGS (1)
  1. ZOELY [Suspect]
     Route: 048

REACTIONS (2)
  - Suicidal ideation [Recovered/Resolved]
  - Premenstrual syndrome [Recovered/Resolved]
